FAERS Safety Report 5728476-8 (Version None)
Quarter: 2008Q2

REPORT INFORMATION
  Report Type: 
  Country: None (occurrence: None)
  Receive Date: 20080430
  Receipt Date: 20080417
  Transmission Date: 20081010
  Serious: Yes (Other)
  Sender: FDA-Public Use
  Company Number: 2008IT004103

PATIENT
  Age: 66 Year
  Sex: Male

DRUGS (4)
  1. ALOXI [Suspect]
     Indication: PROPHYLAXIS OF NAUSEA AND VOMITING
     Dosage: 0.25 MG, SINGLE, INTRAVENOUS
     Route: 042
     Dates: start: 20080404, end: 20080404
  2. CISPLATIN [Suspect]
     Indication: BLADDER ADENOCARCINOMA STAGE UNSPECIFIED
     Dosage: 100 MG, SINGLE, INTRAVENOUS
     Route: 042
     Dates: start: 20080404, end: 20080404
  3. GEMZAR [Suspect]
     Indication: BLADDER ADENOCARCINOMA STAGE UNSPECIFIED
     Dosage: 1600 MG, SINGLE, INTRAVENOUS
     Route: 042
     Dates: start: 20080404, end: 20080404
  4. OXYCONTIN (OXYCODOEN HYDROCHLORIDE) [Concomitant]

REACTIONS (2)
  - IATROGENIC INJURY [None]
  - STEVENS-JOHNSON SYNDROME [None]
